FAERS Safety Report 7631810-5 (Version None)
Quarter: 2011Q3

REPORT INFORMATION
  Report Type: 
  Country: None (occurrence: None)
  Receive Date: 20110725
  Receipt Date: 20110401
  Transmission Date: 20111222
  Serious: No
  Sender: FDA-Public Use
  Company Number: US-BRISTOL-MYERS SQUIBB COMPANY-15653736

PATIENT
  Age: 85 Year
  Sex: Female

DRUGS (14)
  1. PENTOXIFYLLINE [Concomitant]
  2. GLIPIZIDE [Concomitant]
     Dosage: GLIPIZIDE XL
  3. METFORMIN HCL [Concomitant]
  4. ENALAPRIL MALEATE [Concomitant]
  5. METOPROLOL TARTRATE [Concomitant]
  6. FUROSEMIDE [Concomitant]
  7. ISOSORBIDE MONONITRATE [Concomitant]
  8. GENTEAL [Concomitant]
     Dosage: GENTEAL EYE DROPS
  9. DULCOLAX [Concomitant]
  10. COUMADIN [Suspect]
     Indication: PHLEBITIS
     Dates: start: 20010201
  11. FOLIC ACID [Concomitant]
  12. ASPIRIN [Concomitant]
  13. SIMVASTATIN [Concomitant]
  14. GLYCOLAX [Concomitant]
     Dosage: GLYCOLAX POWDER

REACTIONS (1)
  - PROTHROMBIN TIME RATIO INCREASED [None]
